FAERS Safety Report 10426186 (Version 6)
Quarter: 2015Q2

REPORT INFORMATION
  Report Type: Report from Study
  Country: MX (occurrence: MX)
  Receive Date: 20140903
  Receipt Date: 20150424
  Transmission Date: 20150821
  Serious: Yes (Death, Life-Threatening, Hospitalization, Other)
  Sender: FDA-Public Use
  Company Number: MX-ACTELION-A-CH2013-87750

PATIENT
  Age: 24 Year
  Sex: Female
  Weight: 48.5 kg

DRUGS (17)
  1. MACITENTAN [Suspect]
     Active Substance: MACITENTAN
     Indication: PULMONARY ARTERIAL HYPERTENSION
     Dosage: 10 MG, QD
     Route: 048
     Dates: start: 20120212, end: 20150325
  2. AMIODARONE [Concomitant]
     Active Substance: AMIODARONE
     Dosage: UNK
     Dates: start: 20110428
  3. LEVOTHYROXINE [Concomitant]
     Active Substance: LEVOTHYROXINE
     Dosage: UNK
     Dates: start: 20091021
  4. ETHINYLESTRADIOL W/LEVONORGESTREL [Concomitant]
     Active Substance: ETHINYL ESTRADIOL\LEVONORGESTREL
     Dosage: UNK
     Dates: start: 20111019
  5. OXYGEN. [Concomitant]
     Active Substance: OXYGEN
     Dosage: UNK
     Dates: start: 20100101
  6. OXYGEN. [Concomitant]
     Active Substance: OXYGEN
     Dosage: UNK
  7. B COMPLEX B12 [Concomitant]
     Dosage: UNK
     Dates: start: 20130531
  8. BUMETANIDE. [Concomitant]
     Active Substance: BUMETANIDE
     Dosage: UNK
     Dates: start: 20120808
  9. SPIRONOLACTONE. [Concomitant]
     Active Substance: SPIRONOLACTONE
     Dosage: UNK
     Dates: start: 200801
  10. ACENOCUMAROL [Concomitant]
     Active Substance: ACENOCOUMAROL
     Dosage: UNK
     Dates: start: 200801
  11. SILDENAFIL. [Concomitant]
     Active Substance: SILDENAFIL
     Dosage: UNK
     Dates: start: 200801
  12. FERRANIN [Concomitant]
     Dosage: UNK
     Dates: start: 20130531
  13. FUROSEMIDE. [Concomitant]
     Active Substance: FUROSEMIDE
     Dosage: UNK
     Dates: start: 20130913
  14. DIGOXINE [Concomitant]
     Active Substance: DIGOXIN
     Dosage: UNK
     Dates: start: 20130925
  15. FOLIC ACID. [Concomitant]
     Active Substance: FOLIC ACID
     Dosage: UNK
     Dates: start: 20130531
  16. NITRIC OXIDE. [Suspect]
     Active Substance: NITRIC OXIDE
     Indication: PRODUCT USED FOR UNKNOWN INDICATION
     Dosage: UNK
     Route: 065
     Dates: start: 20130827, end: 20130829
  17. IRON POLYMALTOSE [Concomitant]
     Active Substance: IRON POLYMALTOSE
     Dosage: UNK
     Dates: start: 20130531

REACTIONS (29)
  - Oedema peripheral [Fatal]
  - Weight decreased [Unknown]
  - Epistaxis [Recovered/Resolved]
  - Hepatic pain [Fatal]
  - Right ventricular failure [Fatal]
  - Walking distance test abnormal [Fatal]
  - Ascites [Fatal]
  - Paracentesis [Recovered/Resolved]
  - Face oedema [Fatal]
  - N-terminal prohormone brain natriuretic peptide increased [Fatal]
  - Pulmonary arterial hypertension [Fatal]
  - Leukocytosis [Recovered/Resolved]
  - Nausea [Unknown]
  - Tachycardia [Recovered/Resolved]
  - Oxygen saturation decreased [Fatal]
  - Urine output decreased [Fatal]
  - Oliguria [Fatal]
  - Post procedural cellulitis [Recovered/Resolved]
  - Procedural pain [Recovered/Resolved]
  - Arrhythmia [Fatal]
  - Vomiting [Recovered/Resolved]
  - Concomitant disease aggravated [Fatal]
  - Dyspnoea [Fatal]
  - Condition aggravated [Fatal]
  - Cardiogenic shock [Fatal]
  - Extrasystoles [Unknown]
  - Haemoglobin decreased [Unknown]
  - Hepatomegaly [Fatal]
  - Hepatojugular reflux [Fatal]

NARRATIVE: CASE EVENT DATE: 20130826
